FAERS Safety Report 21126100 (Version 1)
Quarter: 2022Q3

REPORT INFORMATION
  Report Type: Spontaneous
  Country: US (occurrence: None)
  Receive Date: 20220723
  Receipt Date: 20220723
  Transmission Date: 20221027
  Serious: Yes (Disabling)
  Sender: FDA-Public Use
  Company Number: None

PATIENT
  Age: 42 Year
  Sex: Female
  Weight: 56.25 kg

DRUGS (1)
  1. GADOLINIUM [Suspect]
     Active Substance: GADOLINIUM

REACTIONS (7)
  - Rash [None]
  - Headache [None]
  - Muscle spasms [None]
  - Feeling abnormal [None]
  - Fatigue [None]
  - Myalgia [None]
  - Chest pain [None]

NARRATIVE: CASE EVENT DATE: 20220609
